FAERS Safety Report 9409896 (Version 1)
Quarter: 2013Q3

REPORT INFORMATION
  Report Type: Other
  Country: JP (occurrence: JP)
  Receive Date: 20130719
  Receipt Date: 20130719
  Transmission Date: 20140515
  Serious: Yes (Hospitalization)
  Sender: FDA-Public Use
  Company Number: JP-ACTELION-A-CH2013-85823

PATIENT
  Age: 11 Year
  Sex: Female

DRUGS (2)
  1. TRACLEER [Suspect]
     Indication: PULMONARY ARTERIAL HYPERTENSION
     Route: 048
  2. METHYLPREDNISOLONE [Concomitant]

REACTIONS (12)
  - Pericarditis [Recovering/Resolving]
  - Myocarditis [Recovering/Resolving]
  - Pyrexia [Recovering/Resolving]
  - Chest pain [Recovering/Resolving]
  - Electrocardiogram ST segment elevation [Recovering/Resolving]
  - Pericardial effusion [Recovering/Resolving]
  - Troponin T increased [Recovering/Resolving]
  - Blood creatine phosphokinase increased [Recovering/Resolving]
  - Mixed connective tissue disease [Unknown]
  - Condition aggravated [Unknown]
  - Nasopharyngitis [Recovering/Resolving]
  - Mycoplasma infection [Unknown]
